FAERS Safety Report 24588712 (Version 2)
Quarter: 2024Q4

REPORT INFORMATION
  Report Type: Spontaneous
  Country: US (occurrence: US)
  Receive Date: 20241107
  Receipt Date: 20241119
  Transmission Date: 20250114
  Serious: No
  Sender: BAYER HEALTHCARE LLC
  Company Number: US-BAYER-2024A159147

PATIENT
  Age: 74 Year
  Sex: Male

DRUGS (1)
  1. ASTEPRO [Suspect]
     Active Substance: AZELASTINE HYDROCHLORIDE
     Indication: Rhinorrhoea
     Dosage: 2 SPRAYS IN EACH NOSTRILS
     Dates: start: 20241102, end: 20241104

REACTIONS (2)
  - Sneezing [Recovered/Resolved]
  - Hypersensitivity [Recovered/Resolved]
